FAERS Safety Report 8850143 (Version 1)
Quarter: 2012Q4

REPORT INFORMATION
  Report Type: 
  Country: CA (occurrence: CA)
  Receive Date: 20121019
  Receipt Date: 20121019
  Transmission Date: 20130627
  Serious: Yes (Other)
  Sender: FDA-Public Use
  Company Number: CA-GLAXOSMITHKLINE-A0959277A

PATIENT
  Age: 56 Year
  Sex: Female
  Weight: 45.5 kg

DRUGS (2)
  1. ADVAIR [Suspect]
     Indication: CHRONIC OBSTRUCTIVE PULMONARY DISEASE
     Dosage: 1PUFF Twice per day
     Route: 055
     Dates: start: 1996
  2. RESCUE REMEDY [Concomitant]
     Route: 055

REACTIONS (5)
  - Dyspnoea [Recovering/Resolving]
  - Overdose [Unknown]
  - Cough [Unknown]
  - Productive cough [Unknown]
  - Urinary tract infection [Not Recovered/Not Resolved]
